FAERS Safety Report 13108092 (Version 2)
Quarter: 2017Q1

REPORT INFORMATION
  Report Type: Spontaneous
  Country: US (occurrence: US)
  Receive Date: 20170112
  Receipt Date: 20170113
  Transmission Date: 20170428
  Serious: No
  Sender: FDA-Public Use
  Company Number: US-PFIZER INC-2017009582

PATIENT
  Sex: Male

DRUGS (2)
  1. NITROSTAT [Suspect]
     Active Substance: NITROGLYCERIN
     Indication: CARDIAC DISORDER
  2. NITROSTAT [Suspect]
     Active Substance: NITROGLYCERIN
     Indication: CHEST PAIN
     Dosage: 1 DF, UNK
     Route: 060

REACTIONS (1)
  - Product use issue [Unknown]
